FAERS Safety Report 9717487 (Version 3)
Quarter: 2015Q3

REPORT INFORMATION
  Report Type: Spontaneous
  Country: US (occurrence: US)
  Receive Date: 20131127
  Receipt Date: 20150803
  Transmission Date: 20151125
  Serious: No
  Sender: FDA-Public Use
  Company Number: US-GILEAD-2009-0019787

PATIENT
  Age: 81 Year
  Sex: Female
  Weight: 99.79 kg

DRUGS (16)
  1. LASIX [Concomitant]
     Active Substance: FUROSEMIDE
     Indication: OEDEMA
     Dates: start: 20081113
  2. ASPIRIN. [Concomitant]
     Active Substance: ASPIRIN
     Dates: start: 20081113
  3. LETAIRIS [Suspect]
     Active Substance: AMBRISENTAN
     Indication: PULMONARY ARTERIAL HYPERTENSION
     Route: 048
     Dates: start: 20081128
  4. METOLAZONE. [Concomitant]
     Active Substance: METOLAZONE
     Indication: OEDEMA
     Dates: start: 20081113
  5. BL VITAMIN B-12 [Concomitant]
  6. ROBAXIN [Concomitant]
     Active Substance: METHOCARBAMOL
     Indication: MUSCLE RELAXANT THERAPY
     Dates: start: 20081113
  7. COMPLETE MULTIVITAMIN [Concomitant]
     Active Substance: VITAMINS
  8. ARANESP [Concomitant]
     Active Substance: DARBEPOETIN ALFA
  9. BL FISH OIL CONCENTRATE [Concomitant]
  10. VITAMIN D [Concomitant]
     Active Substance: CHOLECALCIFEROL
     Dates: start: 20081113
  11. ISOSORBIDE. [Concomitant]
     Active Substance: ISOSORBIDE
     Dates: start: 20081113
  12. BL CALCIUM [Concomitant]
     Dates: start: 20081113
  13. RIBOFLAVIN [Concomitant]
     Active Substance: RIBOFLAVIN
  14. AMBIEN [Concomitant]
     Active Substance: ZOLPIDEM TARTRATE
     Indication: SLEEP DISORDER
     Dates: start: 20081113
  15. POTASSIUM CHLORIDE. [Concomitant]
     Active Substance: POTASSIUM CHLORIDE
     Indication: SUPPLEMENTATION THERAPY
     Dates: start: 20081113
  16. CORE PLUS [Concomitant]
     Dates: start: 20081113

REACTIONS (4)
  - Glossodynia [Recovered/Resolved]
  - Oedema peripheral [Not Recovered/Not Resolved]
  - Nasal congestion [Not Recovered/Not Resolved]
  - Weight increased [Recovered/Resolved]

NARRATIVE: CASE EVENT DATE: 20081212
